FAERS Safety Report 12554134 (Version 1)
Quarter: 2016Q3

REPORT INFORMATION
  Report Type: Spontaneous
  Country: US (occurrence: US)
  Receive Date: 20160713
  Receipt Date: 20160713
  Transmission Date: 20161109
  Serious: Yes (Hospitalization)
  Sender: FDA-Public Use
  Company Number: US-BRISTOL-MYERS SQUIBB COMPANY-BMS-2016-055367

PATIENT
  Age: 76 Year
  Sex: Male
  Weight: 90.71 kg

DRUGS (1)
  1. ELIQUIS [Suspect]
     Active Substance: APIXABAN
     Indication: PRODUCT USED FOR UNKNOWN INDICATION
     Dosage: 5 MG, UNK
     Route: 065
     Dates: start: 201604, end: 20160519

REACTIONS (4)
  - Aggression [Recovered/Resolved]
  - Weight decreased [Unknown]
  - Mental disorder [Recovered/Resolved]
  - Confusional state [Recovered/Resolved]
